FAERS Safety Report 8042815 (Version 10)
Quarter: 2013Q1

REPORT INFORMATION
  Report Type: Spontaneous
  Country: US (occurrence: US)
  Receive Date: 20110718
  Receipt Date: 20121018
  Transmission Date: 20140127
  Serious: Yes (Other)
  Sender: FDA-Public Use
  Company Number: US-ASTRAZENECA-2011SE41513

PATIENT
  Age: 21228 Day
  Sex: Female
  Weight: 58.1 kg

DRUGS (77)
  1. NEXIUM [Suspect]
     Indication: GASTROOESOPHAGEAL REFLUX DISEASE
     Route: 048
     Dates: start: 1995, end: 2010
  2. NEXIUM [Suspect]
     Indication: GASTROOESOPHAGEAL REFLUX DISEASE
     Route: 048
     Dates: start: 20021107
  3. NEXIUM [Suspect]
     Indication: GASTROOESOPHAGEAL REFLUX DISEASE
     Route: 048
     Dates: start: 20060207
  4. NEXIUM [Suspect]
     Indication: GASTROOESOPHAGEAL REFLUX DISEASE
     Route: 048
     Dates: start: 20061106
  5. NEXIUM [Suspect]
     Indication: GASTROOESOPHAGEAL REFLUX DISEASE
     Route: 048
     Dates: start: 20070526
  6. NEXIUM [Suspect]
     Indication: GASTROOESOPHAGEAL REFLUX DISEASE
     Dosage: 40 MG CAPSULE AS DIRECTED
     Route: 048
     Dates: start: 20110912
  7. PRILOSEC [Suspect]
     Indication: GASTROOESOPHAGEAL REFLUX DISEASE
     Route: 065
     Dates: start: 1995, end: 2010
  8. CEPHALEXIN [Concomitant]
     Dosage: 500 MG 2 CS PO NOW THEN 1 C QID TAT
     Dates: start: 20030912
  9. CEPHALEXIN [Concomitant]
     Dates: start: 20060315
  10. CEPHALEXIN [Concomitant]
     Dates: start: 20070529
  11. DIFLUCAN [Concomitant]
     Dates: start: 20060208
  12. PREDNISONE [Concomitant]
     Indication: ARTHRITIS
     Dates: start: 20030810
  13. PREDNISONE [Concomitant]
     Indication: ARTHRITIS
     Dates: start: 20060313
  14. PREDNISONE [Concomitant]
     Indication: ARTHRITIS
     Dosage: WITH FOOD OR MILK
     Dates: start: 20061002
  15. PREDNISONE [Concomitant]
     Indication: ARTHRITIS
     Dosage: 5-10 MG PRN
     Dates: start: 20060919
  16. VICODIN/NORCO [Concomitant]
     Indication: PAIN
     Dates: start: 20021107
  17. VICODIN/NORCO [Concomitant]
     Indication: PAIN
     Dosage: 10 MG-650 MG
     Dates: start: 20060203
  18. VICODIN/NORCO [Concomitant]
     Indication: PAIN
     Dosage: 5MG-500MG
     Dates: start: 20060220
  19. VICODIN/NORCO [Concomitant]
     Indication: PAIN
     Dosage: 7.5-325 MG TAKE ONE TABLET EVERY SIX HOURS
     Dates: start: 20070531
  20. VICODIN/NORCO [Concomitant]
     Indication: PAIN
     Dosage: 7.5-325 MG AS NEEDED FOR PAIN EVERY SIX HOURS
     Dates: start: 20110912
  21. RISPERDAL [Concomitant]
     Dates: start: 20040909
  22. RISPERDAL [Concomitant]
     Dates: start: 20060308
  23. AMITRIPTYLINE HCL [Concomitant]
     Dates: start: 20040909
  24. AMITRIPTYLINE HCL [Concomitant]
     Dates: start: 20060308
  25. TEQUIN [Concomitant]
     Dates: start: 20060227
  26. OMACOR [Concomitant]
     Dates: start: 20060223
  27. CORGARD [Concomitant]
     Dates: start: 20021107
  28. CORGARD [Concomitant]
     Dates: start: 20060223
  29. CORGARD [Concomitant]
     Dates: start: 20060920
  30. CORGARD [Concomitant]
     Dates: start: 20110912
  31. FIORICET [Concomitant]
     Indication: TENSION HEADACHE
     Dates: start: 198905
  32. FIORICET [Concomitant]
     Indication: TENSION HEADACHE
     Dosage: 325-40-50
     Dates: start: 20060220
  33. FIORICET [Concomitant]
     Indication: TENSION HEADACHE
     Dosage: TAKE ONE TABLET 4 TIMES DAILY AS NEEDED
     Dates: start: 20060911
  34. FIORICET [Concomitant]
     Indication: TENSION HEADACHE
     Dosage: 50-325-40 1 TABLET AS NEEDED EVERY FOUR HOURS
     Dates: start: 20110912
  35. BIAXIN XL [Concomitant]
     Dates: start: 20060220
  36. ZYRTEC [Concomitant]
     Dosage: DAILY ON AN AS NEEDED BASIS
     Dates: start: 20040823
  37. ZYRTEC [Concomitant]
     Dates: start: 20060220
  38. METHYLPREDNISOLONE [Concomitant]
     Dates: start: 20060216
  39. ROBAXIN [Concomitant]
     Dates: start: 20060216
  40. ROBAXIN [Concomitant]
     Dates: start: 20070531
  41. ROBAXIN [Concomitant]
     Dosage: 750 MG EVERY 4-6 HOURS PRN
     Route: 048
     Dates: start: 20070905
  42. ROBAXIN [Concomitant]
     Dosage: 450 MG TABLET 1 TABLET EVERY FOUR HRS PRN
     Dates: start: 20110912
  43. LOMOTIL [Concomitant]
     Dosage: 2.5-0.25 MG
     Dates: start: 20060210
  44. LOMOTIL [Concomitant]
     Dosage: TWO TABLETS PRN
     Dates: start: 20040823
  45. CLONAZEPAM/KLONOPIN [Concomitant]
     Dosage: 1 ME AT BED TIME PRN
     Dates: start: 20040823
  46. CLONAZEPAM/KLONOPIN [Concomitant]
     Dates: start: 20060208
  47. CLONAZEPAM/KLONOPIN [Concomitant]
     Dates: start: 20070613
  48. CLONAZEPAM/KLONOPIN [Concomitant]
     Dates: start: 20110912
  49. CELEBREX [Concomitant]
     Dates: start: 20021107
  50. CELEBREX [Concomitant]
     Dates: start: 20060201
  51. CELEBREX [Concomitant]
     Dosage: WITH FOOD OR MILK
     Dates: start: 20060920
  52. BUT/ASA/CAFF/FIORINAL [Concomitant]
     Indication: PAIN
     Dosage: 50/325/40 MG TAKE ONE TABLET EVERY FOUR HOURS AS NEEDED
     Dates: start: 20070521
  53. BUT/ASA/CAFF/FIORINAL [Concomitant]
     Indication: PAIN
     Dosage: TAKE ONE CAPSULE EVERY SIX HOURS AS NEEDED
     Route: 048
     Dates: start: 20070521
  54. IMITREX [Concomitant]
     Indication: HEADACHE
     Dosage: 50 MG ONE TO TWO PRN
     Dates: start: 20040823
  55. IMITREX [Concomitant]
     Indication: HEADACHE
     Dosage: 50 MG TABLET TAKE ONE TABLET AT ONSET OF HEADACHE AND REPEAT IN TWO HOURS IF NEEDED
     Dates: start: 20070526
  56. LYRICA [Concomitant]
     Dates: start: 20070618
  57. LYRICA [Concomitant]
     Dates: start: 20110912
  58. CELEXA [Concomitant]
     Dates: start: 20021107
  59. CELEXA [Concomitant]
     Dates: start: 20041009
  60. CELEXA [Concomitant]
     Dates: start: 20110912
  61. ELAVIL [Concomitant]
     Dates: start: 20021107
  62. ELAVIL [Concomitant]
     Dates: start: 20110912
  63. STELEZINE [Concomitant]
     Dates: start: 20021107
  64. CLARITIN D [Concomitant]
     Dosage: ONE TABLET PER DAY PRN
     Route: 048
     Dates: start: 20070905
  65. BENADRYL [Concomitant]
     Dosage: 25 MG TWO TABLET PER DAY PRN
     Route: 048
     Dates: start: 20070905
  66. LIBRIUM [Concomitant]
     Dosage: 10 MG PRN
     Dates: start: 20060919
  67. SKELAXIN [Concomitant]
     Dates: start: 20110912
  68. DEPOMEDROL [Concomitant]
  69. IMMUNOPLEX [Concomitant]
     Dosage: 3 - 4 PER DAY
     Dates: start: 20060105
  70. VTM [Concomitant]
     Dosage: AS PER NEED
     Dates: start: 20060105
  71. POLYHISTINE D [Concomitant]
     Dosage: BID
     Dates: start: 198905
  72. HYDROCODONE/APAP/NORCO [Concomitant]
     Dosage: 10 MG/650 MG ONE TABLET EVERY FOUR HOURS AND AS PER NEED
     Route: 048
     Dates: start: 20050624
  73. HYDROCODONE/APAP/NORCO [Concomitant]
     Dosage: 7.5/325 MG ONE TABLET EVERY SIX HOURS
     Route: 048
     Dates: start: 20071017
  74. PROPOXYPHENE-N/APAP [Concomitant]
     Dosage: 100 MG/650 MG ONE TABLET EVERY FOUR TO SIX HOURS AND AS PER NEED
     Route: 048
     Dates: start: 20030912
  75. ACETAMINOPHEN W/CODEINE [Concomitant]
     Indication: PAIN
     Dosage: ONE TABLET EVERY FOUR TO SIX HOURS AND AS PER NEED
     Route: 048
     Dates: start: 20030924
  76. PEPCID [Concomitant]
     Dates: start: 20040823
  77. VICODIN [Concomitant]
     Dosage: FOUR TIMES A DAY PRN
     Dates: start: 20040823

REACTIONS (7)
  - Osteoarthritis [Unknown]
  - Foot fracture [Unknown]
  - Mental disorder [Unknown]
  - Pain [Unknown]
  - Osteoporosis [Unknown]
  - Pain in extremity [Unknown]
  - Osteopenia [Unknown]
